FAERS Safety Report 21337714 (Version 3)
Quarter: 2022Q3

REPORT INFORMATION
  Report Type: Spontaneous
  Country: US (occurrence: US)
  Receive Date: 20220915
  Receipt Date: 20220926
  Transmission Date: 20221027
  Serious: No
  Sender: FDA-Public Use
  Company Number: US-NOVARTISTESTPH-NVSC2022US206605

PATIENT
  Sex: Female

DRUGS (2)
  1. RITALIN [Suspect]
     Active Substance: METHYLPHENIDATE HYDROCHLORIDE
     Indication: Attention deficit hyperactivity disorder
     Dosage: UNK
     Route: 065
  2. DAYTRANA [Suspect]
     Active Substance: METHYLPHENIDATE
     Indication: Attention deficit hyperactivity disorder
     Dosage: 20 MG (EVERY 9 HOURS)
     Route: 062

REACTIONS (10)
  - Obesity [Unknown]
  - COVID-19 [Unknown]
  - Chest pain [Unknown]
  - Dyspnoea [Unknown]
  - Exercise tolerance decreased [Unknown]
  - Depression [Unknown]
  - Blood pressure increased [Not Recovered/Not Resolved]
  - Decreased appetite [Unknown]
  - Arthralgia [Unknown]
  - Drug ineffective [Unknown]
